FAERS Safety Report 23362066 (Version 2)
Quarter: 2024Q1

REPORT INFORMATION
  Report Type: Spontaneous
  Country: US (occurrence: US)
  Receive Date: 20240103
  Receipt Date: 20240301
  Transmission Date: 20240410
  Serious: Yes (Disabling, Other)
  Sender: FDA-Public Use
  Company Number: US-PFIZER INC-PV202300207070

PATIENT
  Age: 69 Year
  Sex: Male
  Weight: 99.773 kg

DRUGS (1)
  1. SPIRONOLACTONE [Suspect]
     Active Substance: SPIRONOLACTONE
     Indication: Diabetes mellitus
     Dosage: UNK, DAILY
     Route: 048
     Dates: start: 2022, end: 2022

REACTIONS (5)
  - Headache [Recovering/Resolving]
  - Impaired driving ability [Recovering/Resolving]
  - Feeling abnormal [Recovering/Resolving]
  - Product dose omission issue [Unknown]
  - Off label use [Unknown]
